FAERS Safety Report 12539651 (Version 5)
Quarter: 2017Q4

REPORT INFORMATION
  Report Type: Spontaneous
  Country: FR (occurrence: DZ)
  Receive Date: 20160708
  Receipt Date: 20171123
  Transmission Date: 20180320
  Serious: Yes (Hospitalization)
  Sender: FDA-Public Use
  Company Number: DZ-BIOVITRUM-2014DZ0354

PATIENT
  Age: 5 Year
  Sex: Male
  Weight: 20 kg

DRUGS (1)
  1. ORFADIN [Suspect]
     Active Substance: NITISINONE
     Indication: TYROSINAEMIA
     Dosage: 1 MG/KG/DAY
     Route: 048
     Dates: start: 20090915

REACTIONS (1)
  - Priapism [Not Recovered/Not Resolved]

NARRATIVE: CASE EVENT DATE: 20140801
